FAERS Safety Report 10751736 (Version 1)
Quarter: 2015Q1

REPORT INFORMATION
  Report Type: Spontaneous
  Country: IL (occurrence: IL)
  Receive Date: 20150130
  Receipt Date: 20150130
  Transmission Date: 20150721
  Serious: Yes (Hospitalization, Other)
  Sender: FDA-Public Use
  Company Number: IL-ASTRAZENECA-2015SE07516

PATIENT
  Sex: Female

DRUGS (4)
  1. EVEROLIMUS [Concomitant]
     Active Substance: EVEROLIMUS
  2. FASLODEX [Suspect]
     Active Substance: FULVESTRANT
     Indication: BREAST CANCER
     Route: 030
  3. TAMOXIFEN [Concomitant]
     Active Substance: TAMOXIFEN
  4. AROMATASE INHIBITORS [Concomitant]

REACTIONS (2)
  - Malignant neoplasm progression [Unknown]
  - Dizziness [Unknown]
